FAERS Safety Report 6001254-0 (Version None)
Quarter: 2008Q4

REPORT INFORMATION
  Report Type: 
  Country: None (occurrence: None)
  Receive Date: 20081215
  Receipt Date: 20071102
  Transmission Date: 20090506
  Serious: No
  Sender: FDA-Public Use
  Company Number: US-AMGEN-KDL250971

PATIENT
  Sex: Female

DRUGS (2)
  1. ENBREL [Suspect]
     Indication: RHEUMATOID ARTHRITIS
     Dates: start: 20061107
  2. METHOTREXATE [Concomitant]
     Route: 048
     Dates: start: 20051101

REACTIONS (4)
  - COUGH [None]
  - INJECTION SITE IRRITATION [None]
  - PULMONARY CONGESTION [None]
  - PYREXIA [None]
